FAERS Safety Report 9450357 (Version 2)
Quarter: 2013Q4

REPORT INFORMATION
  Report Type: Spontaneous
  Country: PL (occurrence: None)
  Receive Date: 20130807
  Receipt Date: 20131223
  Transmission Date: 20140711
  Serious: Yes (Hospitalization)
  Sender: FDA-Public Use
  Company Number: 2013P1016455

PATIENT
  Age: 2 Year
  Sex: Female

DRUGS (1)
  1. ALBENDAZOLE [Suspect]
     Indication: ASCARIASIS
     Route: 048
     Dates: start: 20121124, end: 20121124

REACTIONS (12)
  - Vomiting [None]
  - Pyrexia [None]
  - Dehydration [None]
  - Hypotonia [None]
  - Pain [None]
  - Movement disorder [None]
  - Anxiety [None]
  - Balance disorder [None]
  - Listless [None]
  - Communication disorder [None]
  - Blood glucose decreased [None]
  - Depressed mood [None]
